FAERS Safety Report 14742594 (Version 1)
Quarter: 2018Q2

REPORT INFORMATION
  Report Type: Spontaneous
  Country: AU (occurrence: AU)
  Receive Date: 20180410
  Receipt Date: 20180410
  Transmission Date: 20180711
  Serious: Yes (Other)
  Sender: FDA-Public Use
  Company Number: AU-BAXTER-2018BAX010252

PATIENT

DRUGS (9)
  1. PACLITAXEL. [Suspect]
     Active Substance: PACLITAXEL
     Indication: METASTASES TO LIVER
     Dosage: RECEIVED 6 CYCLES
     Route: 065
     Dates: start: 201702
  2. CARBOPLATIN. [Suspect]
     Active Substance: CARBOPLATIN
     Indication: METASTASES TO LIVER
     Dosage: RECEIVED 6 CYCLES
     Route: 065
     Dates: start: 201702
  3. IMATINIB [Suspect]
     Active Substance: IMATINIB
     Indication: METASTASES TO LIVER
     Route: 065
     Dates: start: 201709
  4. DOXORUBICIN [Suspect]
     Active Substance: DOXORUBICIN
     Indication: METASTASES TO LIVER
     Dosage: 1 CYCLE
     Route: 065
     Dates: start: 201706
  5. SUNITINIB [Suspect]
     Active Substance: SUNITINIB
     Indication: MALIGNANT NEOPLASM PROGRESSION
     Route: 065
     Dates: start: 20180209
  6. IMATINIB [Suspect]
     Active Substance: IMATINIB
     Indication: MALIGNANT NEOPLASM PROGRESSION
  7. ENDOXAN CYCLOPHOSPHAMIDE 2G (AS MONOHYDRATE) POWDER FOR INJECTION VIAL [Suspect]
     Active Substance: CYCLOPHOSPHAMIDE
     Indication: METASTASES TO LIVER
     Dosage: 1 CYCLE
     Route: 065
     Dates: start: 201706
  8. VINCRISTINE [Suspect]
     Active Substance: VINCRISTINE
     Indication: METASTASES TO LIVER
     Dosage: 1 CYCLE
     Route: 065
     Dates: start: 201706
  9. SUNITINIB [Suspect]
     Active Substance: SUNITINIB
     Route: 065

REACTIONS (6)
  - Metastases to liver [Unknown]
  - Therapy non-responder [Unknown]
  - Pyrexia [Unknown]
  - Pain [Unknown]
  - Malignant neoplasm progression [Unknown]
  - Malignant neoplasm progression [Unknown]

NARRATIVE: CASE EVENT DATE: 201706
